FAERS Safety Report 4801659-7 (Version None)
Quarter: 2005Q4

REPORT INFORMATION
  Report Type: 
  Country: None (occurrence: None)
  Receive Date: 20051011
  Receipt Date: 20050927
  Transmission Date: 20060501
  Serious: Yes (Death)
  Sender: FDA-Public Use
  Company Number: 218106

PATIENT
  Age: 76 Year
  Sex: Male

DRUGS (5)
  1. RITUXAN [Suspect]
     Indication: LYMPHOMA
     Dosage: 750 MG, INTRAVENOUS
     Route: 042
     Dates: start: 20050602, end: 20050602
  2. CYTOXAN [Concomitant]
  3. VINCRISTINE [Concomitant]
  4. PREDNISONE [Concomitant]
  5. HUMIRA [Concomitant]

REACTIONS (2)
  - ACUTE RESPIRATORY FAILURE [None]
  - PYREXIA [None]
